FAERS Safety Report 10575803 (Version 1)
Quarter: 2014Q4

REPORT INFORMATION
  Report Type: Spontaneous
  Country: US (occurrence: None)
  Receive Date: 20141110
  Receipt Date: 20141110
  Transmission Date: 20150529
  Serious: No
  Sender: FDA-Public Use
  Company Number: None

PATIENT
  Age: 48 Year
  Sex: Female
  Weight: 63.5 kg

DRUGS (1)
  1. MUCINEX ALLERGY [Suspect]
     Active Substance: FEXOFENADINE HYDROCHLORIDE
     Indication: MULTIPLE ALLERGIES
     Dosage: 1 PILL ONCE DAILY TAKEN BY MOUTH
     Route: 048
     Dates: start: 20141106, end: 20141106

REACTIONS (5)
  - Dizziness [None]
  - Nausea [None]
  - Pain [None]
  - Headache [None]
  - Vertigo [None]

NARRATIVE: CASE EVENT DATE: 20141107
